FAERS Safety Report 7251298-6 (Version None)
Quarter: 2011Q1

REPORT INFORMATION
  Report Type: 
  Country: None (occurrence: None)
  Receive Date: 20110128
  Receipt Date: 20110124
  Transmission Date: 20110831
  Serious: Yes (Other)
  Sender: FDA-Public Use
  Company Number: DE-GENZYME-CERZ-1001805

PATIENT
  Age: 68 Year
  Sex: Male

DRUGS (1)
  1. CEREZYME [Suspect]
     Indication: GAUCHER'S DISEASE
     Dosage: UNK
     Dates: start: 19990101

REACTIONS (1)
  - OSTEONECROSIS [None]
